FAERS Safety Report 18473414 (Version 1)
Quarter: 2020Q4

REPORT INFORMATION
  Report Type: Spontaneous
  Country: US (occurrence: US)
  Receive Date: 20201106
  Receipt Date: 20201106
  Transmission Date: 20210114
  Serious: No
  Sender: FDA-Public Use
  Company Number: None

PATIENT
  Age: 72 Year
  Sex: Male
  Weight: 116.1 kg

DRUGS (3)
  1. PAROEX [Suspect]
     Active Substance: CHLORHEXIDINE GLUCONATE
     Indication: DENTAL DISORDER PROPHYLAXIS
     Dosage: ?          QUANTITY:1 OUNCE(S);OTHER FREQUENCY:WEEKENDS;?
     Route: 048
     Dates: start: 20201024, end: 20201106
  2. METFORMIN-ATORVASTATIN [Concomitant]
  3. LISINOPRIL. [Concomitant]
     Active Substance: LISINOPRIL

REACTIONS (1)
  - Gingival pain [None]

NARRATIVE: CASE EVENT DATE: 20201024
